FAERS Safety Report 6907327-X (Version None)
Quarter: 2010Q3

REPORT INFORMATION
  Report Type: 
  Country: None (occurrence: None)
  Receive Date: 20100730
  Receipt Date: 20100719
  Transmission Date: 20110219
  Serious: Yes (Hospitalization, Other)
  Sender: FDA-Public Use
  Company Number: CLOF-1000680

PATIENT
  Age: 63 Year
  Sex: Female
  Weight: 119 kg

DRUGS (11)
  1. CLOFARABINE OR PLACEBO (CODE NOT BROKEN) [Suspect]
     Indication: LEUKAEMIA
     Dosage: BLINDED, INFORMATION WITHHELD.
     Dates: start: 20090818, end: 20090822
  2. CYTARABINE [Suspect]
     Indication: LEUKAEMIA
     Dosage: 1 G/M2, QDX5
     Dates: start: 20090818, end: 20090822
  3. VANCOMYCIN [Concomitant]
  4. ENALAPRIL MALEATE [Concomitant]
  5. CEFEPIME [Concomitant]
  6. ALLOPURINOL [Concomitant]
  7. AMILORIDE (AMILORIDE) [Concomitant]
  8. HYDROMORPHONE HCL [Concomitant]
  9. INSULIN ASPART (INSULIN ASPART) INJECTION [Concomitant]
  10. MEROPENEM [Concomitant]
  11. NEUPOGEN [Concomitant]

REACTIONS (14)
  - ASPARTATE AMINOTRANSFERASE INCREASED [None]
  - BLISTER [None]
  - BLOOD ALBUMIN DECREASED [None]
  - BLOOD LACTATE DEHYDROGENASE INCREASED [None]
  - ENCEPHALOPATHY [None]
  - GASTROINTESTINAL HAEMORRHAGE [None]
  - HAEMOGLOBIN DECREASED [None]
  - MOVEMENT DISORDER [None]
  - MYOCLONUS [None]
  - NEUTROPENIA [None]
  - OEDEMA PERIPHERAL [None]
  - RENAL FAILURE [None]
  - THROMBOCYTOPENIA [None]
  - THROMBOSIS [None]
